FAERS Safety Report 7018430-0 (Version None)
Quarter: 2010Q3

REPORT INFORMATION
  Report Type: 
  Country: None (occurrence: None)
  Receive Date: 20100928
  Receipt Date: 20100920
  Transmission Date: 20110219
  Serious: Yes (Other)
  Sender: FDA-Public Use
  Company Number: US-SANOFI-AVENTIS-2010SA046127

PATIENT
  Age: 62 Year
  Sex: Male
  Weight: 107 kg

DRUGS (2)
  1. LANTUS [Suspect]
     Indication: TYPE 2 DIABETES MELLITUS
     Dosage: 8 AM AND 11 PM DOSE:50 UNIT(S)
     Route: 058
     Dates: start: 20060101
  2. HUMALOG [Concomitant]
     Dosage: 8 AM, 2 PM, 8 PM

REACTIONS (5)
  - BLOOD GLUCOSE INCREASED [None]
  - HYPERHIDROSIS [None]
  - PHOTOSENSITIVITY REACTION [None]
  - RETINAL HAEMORRHAGE [None]
  - VISION BLURRED [None]
